FAERS Safety Report 24122889 (Version 2)
Quarter: 2024Q3

REPORT INFORMATION
  Report Type: Spontaneous
  Country: US (occurrence: US)
  Receive Date: 20240723
  Receipt Date: 20240807
  Transmission Date: 20241017
  Serious: Yes (Other)
  Sender: CATALYST PHARMA
  Company Number: US-CATALYST PHARMACEUTICALS, INC-US-CATA-24-00714

PATIENT
  Sex: Male
  Weight: 72.562 kg

DRUGS (10)
  1. FIRDAPSE [Suspect]
     Active Substance: AMIFAMPRIDINE PHOSPHATE
     Indication: Myasthenic syndrome
     Dosage: 1 TABLET BY MOUTH THREE TIMES PER DAY FOR 30 DAYS
     Route: 048
     Dates: start: 20240622, end: 20240721
  2. FIRDAPSE [Suspect]
     Active Substance: AMIFAMPRIDINE PHOSPHATE
     Dosage: 2 TABLETS BY MOUTH THREE TIMES PER DAY
     Route: 048
     Dates: start: 20240722, end: 202407
  3. FIRDAPSE [Suspect]
     Active Substance: AMIFAMPRIDINE PHOSPHATE
     Dosage: 1 TABLET THREE TIMES A DAY
     Route: 048
     Dates: start: 202407, end: 202407
  4. FIRDAPSE [Suspect]
     Active Substance: AMIFAMPRIDINE PHOSPHATE
     Dosage: HALF A TABLET THREE TIMES A DAY
     Route: 048
     Dates: start: 202407
  5. ALLOPURINOL [Concomitant]
     Active Substance: ALLOPURINOL
     Indication: Product used for unknown indication
     Dosage: 100 MG DAILY
     Route: 065
  6. CLARITIN-D NOS [Concomitant]
     Active Substance: LORATADINE\PSEUDOEPHEDRINE SULFATE
     Indication: Chemotherapy
     Dosage: DAILY
     Route: 065
  7. OMEPRAZOLE [Concomitant]
     Active Substance: OMEPRAZOLE
     Indication: Product used for unknown indication
     Dosage: 20 MG DAILY
     Route: 065
  8. ZOFRAN [Concomitant]
     Active Substance: ONDANSETRON HYDROCHLORIDE
     Indication: Product used for unknown indication
     Dosage: 4 MG AS NEEDED
     Route: 065
  9. STOOL SOFTENER (DOCUSATE) [Concomitant]
     Active Substance: DOCUSATE
     Indication: Product used for unknown indication
     Dosage: 100 MG DAILY
     Route: 065
  10. ONDANSETRON [Concomitant]
     Active Substance: ONDANSETRON
     Indication: Product used for unknown indication
     Dosage: 4 MG AS NEEDED
     Route: 065

REACTIONS (4)
  - Small cell lung cancer recurrent [Not Recovered/Not Resolved]
  - Pain [Not Recovered/Not Resolved]
  - Feeling abnormal [Recovered/Resolved]
  - Intentional product use issue [Unknown]

NARRATIVE: CASE EVENT DATE: 20240101
